FAERS Safety Report 24223111 (Version 1)
Quarter: 2024Q3

REPORT INFORMATION
  Report Type: Spontaneous
  Country: US (occurrence: None)
  Receive Date: 20240815
  Receipt Date: 20240815
  Transmission Date: 20241016
  Serious: Yes (Hospitalization)
  Sender: Public
  Company Number: None

PATIENT
  Age: 43 Year
  Sex: Male
  Weight: 98.1 kg

DRUGS (1)
  1. BOTULISM ANTITOXIN NOS [Suspect]
     Active Substance: BOTULISM ANTITOXIN
     Indication: Botulism
     Dosage: 18 ML ONCE INTRAVENOUS?
     Route: 042
     Dates: start: 20240628, end: 20240628

REACTIONS (2)
  - Anaphylactic reaction [None]
  - Infusion site reaction [None]

NARRATIVE: CASE EVENT DATE: 20240627
